FAERS Safety Report 6147335-2 (Version None)
Quarter: 2009Q2

REPORT INFORMATION
  Report Type: 
  Country: None (occurrence: None)
  Receive Date: 20090408
  Receipt Date: 20090330
  Transmission Date: 20091009
  Serious: Yes (Hospitalization, Disabling, Other)
  Sender: FDA-Public Use
  Company Number: PHHY2009JP07082

PATIENT
  Sex: Male

DRUGS (3)
  1. DIOVAN [Suspect]
     Dosage: 80 MG, QD
     Route: 048
     Dates: start: 20071203
  2. NORVASC [Concomitant]
     Indication: HYPERTENSION
     Dosage: 5MG
     Route: 048
     Dates: start: 20040101
  3. SERMION [Concomitant]
     Dosage: 10MG
     Route: 048
     Dates: start: 20040101

REACTIONS (3)
  - BLOOD UREA INCREASED [None]
  - CEREBRAL INFARCTION [None]
  - HEMIANOPIA HOMONYMOUS [None]
